FAERS Safety Report 4948173-6 (Version None)
Quarter: 2006Q1

REPORT INFORMATION
  Report Type: 
  Country: None (occurrence: None)
  Receive Date: 20060320
  Receipt Date: 20060315
  Transmission Date: 20060701
  Serious: Yes (Death, Other)
  Sender: FDA-Public Use
  Company Number: PHBS2006JP03918

PATIENT
  Age: 63 Year
  Sex: Female

DRUGS (8)
  1. GLEEVEC [Suspect]
     Indication: ACUTE MYELOMONOCYTIC LEUKAEMIA
     Dosage: 600 MG/D
     Route: 048
     Dates: start: 20020701, end: 20020710
  2. GLEEVEC [Suspect]
     Dosage: 400 MG/D
     Route: 048
     Dates: start: 20021005, end: 20021119
  3. DAUNORUBICIN HCL [Concomitant]
  4. CYTARABINE [Concomitant]
  5. MERCAPTOPURINE [Concomitant]
  6. IDARUBICIN HCL [Concomitant]
  7. ACLARUBICIN [Concomitant]
  8. GRANULOCYTE COLONY STIMULATING FACTOR [Concomitant]

REACTIONS (5)
  - CEREBRAL HAEMORRHAGE [None]
  - FUNGAL INFECTION [None]
  - MALIGNANT NEOPLASM PROGRESSION [None]
  - NAUSEA [None]
  - VOMITING [None]
